FAERS Safety Report 8482794-1 (Version None)
Quarter: 2012Q3

REPORT INFORMATION
  Report Type: 
  Country: None (occurrence: None)
  Receive Date: 20120702
  Receipt Date: 20120627
  Transmission Date: 20120928
  Serious: Yes (Other)
  Sender: FDA-Public Use
  Company Number: PHHY2012FR055440

PATIENT
  Age: 64 Year
  Sex: Female

DRUGS (6)
  1. FUROSEMIDE [Concomitant]
  2. SIROLIMUS [Interacting]
     Indication: IMMUNOSUPPRESSION
     Dates: start: 20070101, end: 20070801
  3. MESALAMINE [Concomitant]
  4. ATORVASTATIN [Suspect]
  5. ATENOLOL [Concomitant]
  6. MYCOPHENOLATE MOFETIL [Concomitant]

REACTIONS (5)
  - ALVEOLITIS [None]
  - DRUG INTERACTION [None]
  - DYSPNOEA EXERTIONAL [None]
  - COUGH [None]
  - PNEUMONITIS [None]
